FAERS Safety Report 5330139-8 (Version None)
Quarter: 2007Q2

REPORT INFORMATION
  Report Type: 
  Country: None (occurrence: None)
  Receive Date: 20070521
  Receipt Date: 20070515
  Transmission Date: 20071010
  Serious: Yes (Other)
  Sender: FDA-Public Use
  Company Number: US-ASTRAZENECA-2007UW12162

PATIENT
  Age: 46 Year
  Sex: Female
  Weight: 122.5 kg

DRUGS (4)
  1. SEROQUEL [Suspect]
     Route: 048
     Dates: start: 20050101, end: 20070101
  2. ZONEGRAN [Concomitant]
     Indication: CONVULSION
  3. ZOLOFT [Concomitant]
     Route: 030
  4. PRINIVIL [Concomitant]
     Route: 048

REACTIONS (1)
  - DRUG WITHDRAWAL CONVULSIONS [None]
